FAERS Safety Report 6248096-9 (Version None)
Quarter: 2009Q2

REPORT INFORMATION
  Report Type: 
  Country: None (occurrence: None)
  Receive Date: 20090624
  Receipt Date: 20090624
  Transmission Date: 20091009
  Serious: No
  Sender: FDA-Public Use
  Company Number: None

PATIENT
  Sex: Male
  Weight: 90.7194 kg

DRUGS (1)
  1. CELEBREX [Suspect]
     Indication: ARTHRITIS
     Dosage: 1 A DAY (DURATION: ABOUT A YEAR)

REACTIONS (1)
  - ULCER HAEMORRHAGE [None]
